FAERS Safety Report 4771481-9 (Version None)
Quarter: 2005Q3

REPORT INFORMATION
  Report Type: 
  Country: None (occurrence: None)
  Receive Date: 20050913
  Receipt Date: 20050913
  Transmission Date: 20060218
  Serious: No
  Sender: FDA-Public Use
  Company Number: None

PATIENT
  Age: 28 Year
  Sex: Female
  Weight: 53.978 kg

DRUGS (2)
  1. PAXIL [Suspect]
     Indication: ANXIETY
     Dosage: 10-1/2 10 TAKEN DAILY- PO
     Route: 048
     Dates: start: 20020601, end: 20050825
  2. PAXIL [Suspect]
     Indication: DEPRESSION
     Dosage: 10-1/2 10 TAKEN DAILY- PO
     Route: 048
     Dates: start: 20020601, end: 20050825

REACTIONS (11)
  - DISTURBANCE IN ATTENTION [None]
  - DRUG WITHDRAWAL SYNDROME [None]
  - DYSPNOEA [None]
  - EYE ROLLING [None]
  - FEAR [None]
  - FEELING ABNORMAL [None]
  - HALLUCINATIONS, MIXED [None]
  - PARANOIA [None]
  - PHARYNGOLARYNGEAL PAIN [None]
  - SOMNOLENCE [None]
  - VISION BLURRED [None]
